FAERS Safety Report 15386689 (Version 3)
Quarter: 2021Q4

REPORT INFORMATION
  Report Type: Report from Study
  Country: US (occurrence: US)
  Receive Date: 20180914
  Receipt Date: 20211103
  Transmission Date: 20220303
  Serious: Yes (Hospitalization)
  Sender: FDA-Public Use
  Company Number: US-BRISTOL-MYERS SQUIBB COMPANY-BMS-2018-056134

PATIENT
  Age: 35 Year
  Sex: Female
  Weight: 72.1 kg

DRUGS (14)
  1. NIVOLUMAB [Suspect]
     Active Substance: NIVOLUMAB
     Indication: Squamous cell carcinoma of the cervix
     Dosage: 1 MG/KG, Q3WK
     Route: 042
     Dates: start: 20180508
  2. IPILIMUMAB [Suspect]
     Active Substance: IPILIMUMAB
     Indication: Squamous cell carcinoma of the cervix
     Dosage: 3 MG/KG, Q3WK
     Route: 042
     Dates: start: 20180508
  3. TYLENOL [Concomitant]
     Active Substance: ACETAMINOPHEN
     Indication: Product used for unknown indication
     Dosage: 500 MG, UNK
     Route: 065
     Dates: start: 20180201
  4. IBUPROFEN [Concomitant]
     Active Substance: IBUPROFEN
     Indication: Product used for unknown indication
     Dosage: 200 MG, UNK
     Route: 065
     Dates: start: 20180201
  5. MORPHINE [Concomitant]
     Active Substance: MORPHINE
     Indication: Product used for unknown indication
     Dosage: 15 MG, UNK
     Route: 065
     Dates: start: 20180201
  6. OXYCODONE [Concomitant]
     Active Substance: OXYCODONE
     Indication: Product used for unknown indication
     Dosage: 5 MG, UNK
     Route: 065
     Dates: start: 20180201
  7. SENEXON [SENNOSIDE A+B] [Concomitant]
     Indication: Product used for unknown indication
     Dosage: 2 TAB, UNK
     Route: 065
     Dates: start: 20180201
  8. LOZENGER T [Concomitant]
     Indication: Product used for unknown indication
     Dosage: 1 TAB, UNK
     Route: 065
     Dates: start: 20180201
  9. LACTULOSE [Concomitant]
     Active Substance: LACTULOSE
     Indication: Product used for unknown indication
     Dosage: 15 ML, UNK
     Route: 065
     Dates: start: 20180420
  10. MUPIROCIN [Concomitant]
     Active Substance: MUPIROCIN
     Indication: Product used for unknown indication
     Dosage: 1 DF, UNK
     Route: 065
     Dates: start: 20180420
  11. OXYBUTYNIN [Concomitant]
     Active Substance: OXYBUTYNIN
     Indication: Product used for unknown indication
     Dosage: 5 MG, UNK
     Route: 065
     Dates: start: 20180201
  12. CELEBREX [Concomitant]
     Active Substance: CELECOXIB
     Indication: Product used for unknown indication
     Dosage: 100 MG, UNK
     Route: 048
     Dates: start: 20180529
  13. TORADOL [Concomitant]
     Active Substance: KETOROLAC TROMETHAMINE
     Indication: Product used for unknown indication
     Dosage: 30 MG, UNK
     Route: 042
     Dates: start: 20180613, end: 20180616
  14. PHENERGAN [Concomitant]
     Active Substance: PROMETHAZINE HYDROCHLORIDE
     Indication: Product used for unknown indication
     Dosage: 12.5 MG, UNK
     Route: 042

REACTIONS (1)
  - Pyrexia [Recovered/Resolved]

NARRATIVE: CASE EVENT DATE: 20180615
